FAERS Safety Report 6740158-2 (Version None)
Quarter: 2010Q2

REPORT INFORMATION
  Report Type: 
  Country: None (occurrence: None)
  Receive Date: 20100525
  Receipt Date: 20100517
  Transmission Date: 20101027
  Serious: Yes (Hospitalization)
  Sender: FDA-Public Use
  Company Number: A0785449A

PATIENT
  Age: 64 Year
  Sex: Male
  Weight: 85.9 kg

DRUGS (1)
  1. AVANDIA [Suspect]
     Route: 048
     Dates: start: 20051111, end: 20070326

REACTIONS (3)
  - CEREBROVASCULAR ACCIDENT [None]
  - OEDEMA [None]
  - PARALYSIS [None]
